FAERS Safety Report 4899171-2 (Version None)
Quarter: 2006Q1

REPORT INFORMATION
  Report Type: 
  Country: None (occurrence: None)
  Receive Date: 20060130
  Receipt Date: 20060116
  Transmission Date: 20060701
  Serious: Yes (Life-Threatening, Other)
  Sender: FDA-Public Use
  Company Number: 2005EU001142

PATIENT
  Age: 62 Year
  Sex: Female

DRUGS (1)
  1. PROTOPIC [Suspect]
     Indication: LICHENIFICATION
     Dosage: 0.10% , UNKNOWN/D, TOPICAL
     Route: 061
     Dates: start: 20020501, end: 20050401

REACTIONS (4)
  - DRUG INEFFECTIVE [None]
  - LIP AND/OR ORAL CAVITY CANCER [None]
  - LIPIDS INCREASED [None]
  - SQUAMOUS CELL CARCINOMA [None]
